FAERS Safety Report 8791318 (Version 2)
Quarter: 2013Q1

REPORT INFORMATION
  Report Type: Spontaneous
  Country: US (occurrence: None)
  Receive Date: 20120904
  Receipt Date: 20121102
  Transmission Date: 20140127
  Serious: Yes (Hospitalization)
  Sender: FDA-Public Use
  Company Number: 2012PROUSA01883

PATIENT
  Age: 61 Year
  Sex: Male

DRUGS (3)
  1. PROVENGE [Suspect]
     Indication: PROSTATE CANCER METASTATIC
     Dosage: 250 ML, SINGLE, INTRAVENOUS
     Route: 042
     Dates: start: 20120803, end: 20120803
  2. EPOGEN (EPOETIN ALFA) [Concomitant]
  3. IRON REPLACEMENT [Concomitant]

REACTIONS (6)
  - Back pain [None]
  - Anaemia [None]
  - Supraventricular tachycardia [None]
  - Vomiting [None]
  - Adrenal insufficiency [None]
  - Metastases to bone [None]
